FAERS Safety Report 20525129 (Version 1)
Quarter: 2022Q1

REPORT INFORMATION
  Report Type: Report from Study
  Country: CA (occurrence: CA)
  Receive Date: 20220228
  Receipt Date: 20220228
  Transmission Date: 20220424
  Serious: Yes (Other)
  Sender: FDA-Public Use
  Company Number: CA-JNJFOC-20220122946

PATIENT
  Age: 8 Decade
  Sex: Male
  Weight: 63 kg

DRUGS (1)
  1. REMICADE [Suspect]
     Active Substance: INFLIXIMAB
     Indication: Crohn^s disease
     Dosage: ON 23-FEB-2022, THE PATIENT RECEIVED 119TH INFLIXIMAB INFUSION AT DOSE OF 400MG AND PARTIAL HARVEY-B
     Route: 042
     Dates: start: 20080312

REACTIONS (5)
  - Atrial fibrillation [Unknown]
  - Cardiac dysfunction [Unknown]
  - Peritoneal dialysis [Not Recovered/Not Resolved]
  - Diarrhoea [Unknown]
  - Frequent bowel movements [Unknown]

NARRATIVE: CASE EVENT DATE: 20190101
